FAERS Safety Report 5374732-5 (Version None)
Quarter: 2007Q2

REPORT INFORMATION
  Report Type: 
  Country: None (occurrence: None)
  Receive Date: 20070629
  Receipt Date: 20070622
  Transmission Date: 20071010
  Serious: Yes (Other)
  Sender: FDA-Public Use
  Company Number: PHEH2007US09212

PATIENT
  Age: 87 Year
  Sex: Male

DRUGS (1)
  1. LOTREL [Suspect]
     Indication: HYPERTENSION
     Dosage: 5/? MG DAILY
     Dates: start: 20070401, end: 20070601

REACTIONS (2)
  - HEART RATE INCREASED [None]
  - OEDEMA PERIPHERAL [None]
